FAERS Safety Report 14271134 (Version 2)
Quarter: 2017Q4

REPORT INFORMATION
  Report Type: Spontaneous
  Country: US (occurrence: US)
  Receive Date: 20171211
  Receipt Date: 20171213
  Transmission Date: 20180321
  Serious: Yes (Death)
  Sender: FDA-Public Use
  Company Number: US-PFIZER INC-2017526576

PATIENT
  Age: 64 Year
  Sex: Male

DRUGS (7)
  1. MEROPENEM. [Suspect]
     Active Substance: MEROPENEM
     Indication: KLEBSIELLA BACTERAEMIA
     Dosage: 2 G, 3X/DAY (EVERY 8 HOURS)
     Route: 042
  2. PIPERACILLIN/TAZOBACTAM [Concomitant]
     Active Substance: PIPERACILLIN SODIUM\TAZOBACTAM SODIUM
     Indication: EVIDENCE BASED TREATMENT
     Dosage: UNK
     Route: 042
  3. IVERMECTIN. [Concomitant]
     Active Substance: IVERMECTIN
     Indication: STRONGYLOIDIASIS
     Dosage: 200 UG/KG, DAILY
     Route: 045
  4. VANCOMYCIN [Concomitant]
     Active Substance: VANCOMYCIN
     Indication: EVIDENCE BASED TREATMENT
     Dosage: UNK
  5. LEVOFLOXACIN. [Concomitant]
     Active Substance: LEVOFLOXACIN
     Indication: EVIDENCE BASED TREATMENT
     Dosage: UNK
  6. ALBENDAZOLE [Concomitant]
     Active Substance: ALBENDAZOLE
     Indication: EVIDENCE BASED TREATMENT
     Dosage: 400 MG, UNK
     Route: 045
  7. MEROPENEM. [Suspect]
     Active Substance: MEROPENEM
     Indication: STRONGYLOIDIASIS
     Dosage: UNK
     Route: 042

REACTIONS (1)
  - Drug ineffective [Fatal]
